FAERS Safety Report 6273824-6 (Version None)
Quarter: 2009Q3

REPORT INFORMATION
  Report Type: 
  Country: None (occurrence: None)
  Receive Date: 20090716
  Receipt Date: 20090709
  Transmission Date: 20100115
  Serious: Yes (Other)
  Sender: FDA-Public Use
  Company Number: ADR6432009(ARROW LOG NO: 2008AG2569)

PATIENT
  Sex: Male

DRUGS (2)
  1. CITALOPRAM (UNKNOWN MFR) [Suspect]
     Dosage: 40 MG
  2. CLOZAPINE [Concomitant]

REACTIONS (2)
  - ANTIPSYCHOTIC DRUG LEVEL INCREASED [None]
  - DRUG INTERACTION [None]
